FAERS Safety Report 6154484-1 (Version None)
Quarter: 2009Q2

REPORT INFORMATION
  Report Type: 
  Country: None (occurrence: None)
  Receive Date: 20090414
  Receipt Date: 20090407
  Transmission Date: 20091009
  Serious: Yes (Hospitalization, Other)
  Sender: FDA-Public Use
  Company Number: US-ELI_LILLY_AND_COMPANY-US200904001483

PATIENT
  Sex: Female

DRUGS (12)
  1. HUMALOG [Suspect]
     Indication: TYPE 2 DIABETES MELLITUS
     Dosage: UNK, AS NEEDED
     Dates: start: 20080101
  2. HUMALOG [Suspect]
     Dosage: UNK, AS NEEDED
  3. POTASSIUM CHLORIDE [Concomitant]
  4. SLOW-MAG [Concomitant]
  5. CALCIUM [Concomitant]
  6. PRILOSEC [Concomitant]
  7. COREG [Concomitant]
  8. AMBIEN [Concomitant]
  9. METHADONE HCL [Concomitant]
  10. DILAUDID [Concomitant]
  11. FUROSEMIDE [Concomitant]
  12. CLONAZEPAM [Concomitant]

REACTIONS (6)
  - BLOOD GLUCOSE DECREASED [None]
  - BLOOD GLUCOSE INCREASED [None]
  - DRUG INEFFECTIVE [None]
  - FOOT FRACTURE [None]
  - INCORRECT DOSE ADMINISTERED [None]
  - LOSS OF CONSCIOUSNESS [None]
